FAERS Safety Report 9396789 (Version 1)
Quarter: 2013Q3

REPORT INFORMATION
  Report Type: Spontaneous
  Country: AT (occurrence: AT)
  Receive Date: 20130712
  Receipt Date: 20130712
  Transmission Date: 20140515
  Serious: Yes (Hospitalization)
  Sender: FDA-Public Use
  Company Number: AT-ROCHE-1247794

PATIENT
  Sex: Male
  Weight: 81 kg

DRUGS (7)
  1. MABTHERA [Suspect]
     Indication: POLYARTHRITIS
     Dosage: SECOND INFUSION: 11/FEB/2013
     Route: 042
  2. FOLSAN [Concomitant]
     Route: 065
  3. CONCOR [Concomitant]
     Route: 065
  4. PANTOLOC [Concomitant]
     Route: 065
  5. OLEOVIT D3 [Concomitant]
     Route: 065
  6. UROSIN [Concomitant]
     Route: 065
  7. SINTROM [Concomitant]
     Dosage: FORMERLY SINTROM
     Route: 065

REACTIONS (1)
  - Brain stem infarction [Recovered/Resolved]
